FAERS Safety Report 10060867 (Version 1)
Quarter: 2014Q2

REPORT INFORMATION
  Report Type: Report from Study
  Country: JP (occurrence: JP)
  Receive Date: 20140404
  Receipt Date: 20140404
  Transmission Date: 20141212
  Serious: Yes (Other)
  Sender: FDA-Public Use
  Company Number: JP-009507513-1404JPN003463

PATIENT
  Age: 70 Year
  Sex: Female

DRUGS (6)
  1. GLACTIV [Suspect]
     Indication: TYPE 2 DIABETES MELLITUS
     Dosage: 50 MG, QD; AFTER BREAKFAST
     Route: 048
     Dates: start: 20121018
  2. NOVORAPID [Suspect]
     Indication: TYPE 2 DIABETES MELLITUS
     Dosage: 144 IU BID; NOVORAPID 30 MIX
     Route: 058
     Dates: start: 20121018
  3. GLIMICRON [Concomitant]
  4. METGLUCO [Concomitant]
  5. MEVALOTIN [Concomitant]
  6. ATELEC [Concomitant]

REACTIONS (1)
  - Hypoglycaemia [Recovered/Resolved]
